FAERS Safety Report 6886027-9 (Version None)
Quarter: 2010Q3

REPORT INFORMATION
  Report Type: 
  Country: None (occurrence: None)
  Receive Date: 20100729
  Receipt Date: 20090123
  Transmission Date: 20110219
  Serious: No
  Sender: FDA-Public Use
  Company Number: US-PFIZER INC-2008156812

PATIENT
  Sex: Female
  Weight: 72.562 kg

DRUGS (4)
  1. CELEBREX [Suspect]
     Indication: TENDONITIS
     Dosage: 200 MG, 1X/DAY
     Route: 048
     Dates: start: 20081020, end: 20081110
  2. ULTRAM [Concomitant]
     Dosage: UNK
  3. NAPROSYN [Concomitant]
     Dosage: UNK
  4. MEDROL [Concomitant]
     Dosage: UNK

REACTIONS (1)
  - BLOOD PRESSURE INCREASED [None]
